FAERS Safety Report 16883046 (Version 1)
Quarter: 2019Q4

REPORT INFORMATION
  Report Type: Spontaneous
  Country: SE (occurrence: SE)
  Receive Date: 20191004
  Receipt Date: 20191004
  Transmission Date: 20200122
  Serious: Yes (Hospitalization)
  Sender: FDA-Public Use
  Company Number: SE-TEVA-2019-SE-1115886

PATIENT
  Age: 79 Year
  Sex: Female

DRUGS (13)
  1. PREDNISOLONE. [Suspect]
     Active Substance: PREDNISOLONE
     Indication: RHEUMATOID ARTHRITIS
     Dosage: 2.5 MG PER DAY
     Route: 048
     Dates: start: 2011, end: 2019
  2. OMEPRAZOLE. [Concomitant]
     Active Substance: OMEPRAZOLE
     Dosage: 40 MG
     Dates: start: 20190305
  3. ENALAPRIL [Concomitant]
     Active Substance: ENALAPRIL
     Dosage: 5 MG
     Dates: start: 20170705
  4. KALCIPOS-D FORTE 500 MG/800 IE FILMDRAGERAD TABLETT [Concomitant]
     Dosage: 1 DOSAGE FORMS PER DAY
     Dates: start: 20190706
  5. GABAPENTIN 1A FARMA 300 MG KAPSEL, HARD [Concomitant]
     Dosage: 900 MG PER DAY
     Dates: start: 20170510
  6. PREDNISOLONE. [Suspect]
     Active Substance: PREDNISOLONE
     Dosage: 5 MG
     Route: 048
     Dates: start: 2008, end: 2011
  7. SIMVASTATIN BROWN 20 MG FILMDRAGERAD TABLETT [Concomitant]
     Dosage: 20 MG
     Dates: start: 20190506
  8. ADALAT OROS 20 MG DEPOTTABLETT [Concomitant]
     Dosage: 10 MG PER DAY
     Dates: start: 20170705
  9. METHOTREXATE. [Suspect]
     Active Substance: METHOTREXATE
     Indication: RHEUMATOID ARTHRITIS
     Dosage: 5 TABLETS EACH WEEK
     Route: 048
     Dates: start: 2008, end: 2019
  10. FOLIC ACID HYDRATE [Concomitant]
     Dosage: 2 TABLETS EVERY WEEK
     Dates: start: 20170704
  11. PARAFLEX [Concomitant]
     Active Substance: CHLORZOXAZONE
     Dosage: 1-2 TABLET IF NECESSARY
     Dates: start: 20170704
  12. NIFEREX 100 MG ENTEROKAPSEL, H?RD [Concomitant]
     Dosage: 200 MG PER DAY
     Dates: start: 20180820
  13. PANODIL 500 MG FILMDRAGERAD TABLETT [Concomitant]
     Active Substance: ACETAMINOPHEN
     Dosage: 1 GRAM, AS REQUIRED
     Dates: start: 20171013

REACTIONS (1)
  - Cytomegalovirus infection [Not Recovered/Not Resolved]

NARRATIVE: CASE EVENT DATE: 20190828
